FAERS Safety Report 16794880 (Version 1)
Quarter: 2019Q3

REPORT INFORMATION
  Report Type: Spontaneous
  Country: US (occurrence: US)
  Receive Date: 20190911
  Receipt Date: 20190911
  Transmission Date: 20191005
  Serious: Yes (Other)
  Sender: FDA-Public Use
  Company Number: US-ELI_LILLY_AND_COMPANY-US201908015097

PATIENT
  Sex: Male

DRUGS (6)
  1. VIAGRA [Suspect]
     Active Substance: SILDENAFIL CITRATE
     Indication: ERECTILE DYSFUNCTION
     Dosage: 25 MG, 2/M
     Route: 065
     Dates: start: 20100427, end: 201310
  2. CIALIS [Suspect]
     Active Substance: TADALAFIL
     Dosage: 20 MG, BID
     Route: 065
     Dates: start: 20160409, end: 201605
  3. VIAGRA [Suspect]
     Active Substance: SILDENAFIL CITRATE
     Dosage: 50 MG, 2/M
     Route: 065
     Dates: start: 20100427, end: 201310
  4. MORNIFLUMATE [Concomitant]
     Active Substance: MORNIFLUMATE
     Indication: DYSURIA
     Dosage: UNK, UNKNOWN
     Dates: start: 2014
  5. CIALIS [Suspect]
     Active Substance: TADALAFIL
     Indication: ERECTILE DYSFUNCTION
     Dosage: 10 MG, 2/M
     Route: 065
     Dates: start: 20160409, end: 201605
  6. PROSCAR [Concomitant]
     Active Substance: FINASTERIDE
     Indication: DYSURIA
     Dosage: UNK, UNKNOWN
     Dates: start: 2014

REACTIONS (1)
  - Malignant melanoma stage II [Unknown]

NARRATIVE: CASE EVENT DATE: 201410
